FAERS Safety Report 8515522-1 (Version None)
Quarter: 2012Q3

REPORT INFORMATION
  Report Type: 
  Country: None (occurrence: None)
  Receive Date: 20120717
  Receipt Date: 20120706
  Transmission Date: 20120928
  Serious: Yes (Death, Hospitalization)
  Sender: FDA-Public Use
  Company Number: ES-CELGENEUS-144-21880-12012970

PATIENT
  Sex: Male
  Weight: 86.3 kg

DRUGS (32)
  1. COROPRES [Concomitant]
     Dosage: 50 MILLIGRAM
     Route: 065
  2. DEXAMETHASONE [Suspect]
     Indication: MULTIPLE MYELOMA
     Route: 048
     Dates: start: 20100504, end: 20100530
  3. SINTROM [Concomitant]
     Route: 065
     Dates: start: 20100920
  4. DURAGESIC-100 [Concomitant]
     Route: 065
  5. MORPHINE SULFATE [Concomitant]
     Route: 065
  6. VENTOLIN [Concomitant]
     Route: 065
  7. REVLIMID [Suspect]
     Indication: MULTIPLE MYELOMA
     Dosage: 25 MILLIGRAM
     Route: 048
     Dates: start: 20100504, end: 20100524
  8. REVLIMID [Suspect]
     Dosage: 25 MILLIGRAM
     Route: 048
     Dates: start: 20100628, end: 20100711
  9. REVLIMID [Suspect]
     Route: 048
     Dates: start: 20110404, end: 20110911
  10. REVLIMID [Suspect]
     Dosage: 25 MILLIGRAM
     Route: 048
     Dates: start: 20110919, end: 20111009
  11. ARANESP [Concomitant]
     Route: 065
     Dates: start: 20110419
  12. DEXAMETHASONE [Suspect]
     Route: 048
     Dates: start: 20110919, end: 20111016
  13. ENALAPRIL MALEATE [Concomitant]
     Dosage: 40 MILLIGRAM
     Route: 065
  14. ALLOPURINOL [Concomitant]
     Dosage: 300 MILLIGRAM
     Route: 065
  15. OMEPRAZOLE [Concomitant]
     Dosage: 20 MILLIGRAM
     Route: 065
  16. DURAGESIC-100 [Concomitant]
     Route: 065
  17. REVLIMID [Suspect]
     Route: 048
     Dates: start: 20100727, end: 20110101
  18. REVLIMID [Suspect]
     Dosage: 25 MILLIGRAM
     Route: 048
     Dates: start: 20110110, end: 20110130
  19. REVLIMID [Suspect]
     Dosage: 25 MILLIGRAM
     Route: 048
     Dates: start: 20110228, end: 20110306
  20. REVLIMID [Suspect]
     Route: 048
     Dates: start: 20110207, end: 20110227
  21. REVLIMID [Suspect]
     Dosage: 25 MILLIGRAM
     Route: 048
     Dates: start: 20111017, end: 20111106
  22. DEXAMETHASONE [Suspect]
     Route: 048
     Dates: start: 20100531, end: 20100627
  23. FUROSEMIDE [Concomitant]
     Dosage: 1 CAPSULE
     Route: 065
  24. RILAST [Concomitant]
     Route: 055
  25. TOSEINA [Concomitant]
     Route: 065
  26. RED BLOOD CELLS [Concomitant]
     Route: 065
     Dates: start: 20110722, end: 20110722
  27. RED BLOOD CELLS [Concomitant]
     Route: 065
     Dates: start: 20111003, end: 20111003
  28. REVLIMID [Suspect]
     Route: 048
     Dates: start: 20100531, end: 20100620
  29. REVLIMID [Suspect]
     Route: 048
     Dates: start: 20100712, end: 20100718
  30. SPIRIVA [Concomitant]
     Route: 055
  31. RED BLOOD CELLS [Concomitant]
     Route: 065
     Dates: start: 20110419, end: 20110419
  32. RED BLOOD CELLS [Concomitant]
     Route: 065
     Dates: start: 20110822, end: 20110822

REACTIONS (3)
  - RIB FRACTURE [None]
  - MULTIPLE MYELOMA [None]
  - RENAL FAILURE [None]
